FAERS Safety Report 4846425-1 (Version None)
Quarter: 2005Q4

REPORT INFORMATION
  Report Type: 
  Country: None (occurrence: None)
  Receive Date: 20051202
  Receipt Date: 20051118
  Transmission Date: 20060501
  Serious: Yes (Hospitalization)
  Sender: FDA-Public Use
  Company Number: CLOF-10134

PATIENT
  Age: 79 Year
  Sex: Male

DRUGS (8)
  1. CLOFARABINE [Suspect]
     Indication: LYMPHOMA
     Dosage: 4 MG/M2 QD X 5 IV
     Route: 042
     Dates: start: 20050926, end: 20051028
  2. FLOMAX [Concomitant]
  3. FUROSEMIDE [Concomitant]
  4. KETOCONAZOLE [Concomitant]
  5. DIGOXIN [Concomitant]
  6. FLUCONAZOLE [Concomitant]
  7. SULFAMETHOXAZOLE + TRIMETHOPRIM [Concomitant]
  8. ASPIRIN [Concomitant]

REACTIONS (3)
  - ANAEMIA [None]
  - FEBRILE NEUTROPENIA [None]
  - PANCYTOPENIA [None]
